FAERS Safety Report 6532146-6 (Version None)
Quarter: 2010Q1

REPORT INFORMATION
  Report Type: 
  Country: None (occurrence: None)
  Receive Date: 20100108
  Receipt Date: 20100106
  Transmission Date: 20100710
  Serious: Yes (Other)
  Sender: FDA-Public Use
  Company Number: CHPA2010US00569

PATIENT
  Age: 82 Year
  Sex: Male
  Weight: 68.027 kg

DRUGS (1)
  1. PRIVATE LABEL (NCH) [Suspect]
     Indication: SMOKING CESSATION THERAPY
     Dosage: 21 MG, ONCE/SINGLE
     Route: 062

REACTIONS (5)
  - ABNORMAL DREAMS [None]
  - CHEST PAIN [None]
  - HALLUCINATION, VISUAL [None]
  - HEART RATE INCREASED [None]
  - INSOMNIA [None]
